FAERS Safety Report 13944307 (Version 2)
Quarter: 2017Q4

REPORT INFORMATION
  Report Type: Report from Study
  Country: None (occurrence: NL)
  Receive Date: 20170907
  Receipt Date: 20171020
  Transmission Date: 20180320
  Serious: Yes (Death, Other)
  Sender: FDA-Public Use
  Company Number: NL-ABBVIE-17K-114-2093520-00

PATIENT
  Sex: Male

DRUGS (1)
  1. DUODOPA [Suspect]
     Active Substance: CARBIDOPA\LEVODOPA
     Indication: PARKINSON^S DISEASE
     Route: 050
     Dates: start: 20110210

REACTIONS (4)
  - Respiratory failure [Not Recovered/Not Resolved]
  - General physical health deterioration [Unknown]
  - Pneumonia [Fatal]
  - Hypophagia [Unknown]

NARRATIVE: CASE EVENT DATE: 2017
